FAERS Safety Report 8900790 (Version 2)
Quarter: 2012Q4

REPORT INFORMATION
  Report Type: 
  Country: DE (occurrence: DE)
  Receive Date: 20121109
  Receipt Date: 20121205
  Transmission Date: 20130627
  Serious: Yes (Other)
  Sender: FDA-Public Use
  Company Number: DE-GILEAD-2012-0064356

PATIENT
  Sex: Female

DRUGS (9)
  1. RANOLAZINE [Suspect]
     Indication: ANGINA PECTORIS
     Dosage: 375 mg, BID
     Route: 048
     Dates: start: 201108, end: 201111
  2. NEBIVOLOL [Concomitant]
  3. TORASEMID [Concomitant]
  4. SORTIS [Concomitant]
  5. ASPIRIN PROTECT [Concomitant]
  6. ATACAND [Concomitant]
  7. PRESOMEN [Concomitant]
  8. L-THYROX [Concomitant]
  9. ATOSIL /00033002/ [Concomitant]

REACTIONS (1)
  - Hepatic enzyme increased [Recovered/Resolved]
